FAERS Safety Report 7053072-2 (Version None)
Quarter: 2010Q4

REPORT INFORMATION
  Report Type: 
  Country: None (occurrence: None)
  Receive Date: 20101020
  Receipt Date: 20101011
  Transmission Date: 20110411
  Serious: Yes (Hospitalization, Other)
  Sender: FDA-Public Use
  Company Number: US-JNJFOC-20100704027

PATIENT
  Sex: Female

DRUGS (4)
  1. LEVAQUIN [Suspect]
     Indication: FLUID RETENTION
     Route: 048
  2. LEVAQUIN [Suspect]
     Indication: PYREXIA
     Route: 048
  3. LEVAQUIN [Suspect]
     Route: 042
  4. LEVAQUIN [Suspect]
     Indication: URINARY TRACT INFECTION
     Route: 042

REACTIONS (7)
  - ARTHRALGIA [None]
  - BALANCE DISORDER [None]
  - BLISTER [None]
  - HEART RATE IRREGULAR [None]
  - MUSCULAR WEAKNESS [None]
  - PAIN [None]
  - RASH [None]
